FAERS Safety Report 4485123-3 (Version None)
Quarter: 2004Q4

REPORT INFORMATION
  Report Type: 
  Country: None (occurrence: None)
  Receive Date: 20041026
  Receipt Date: 20031030
  Transmission Date: 20050328
  Serious: No
  Sender: FDA-Public Use
  Company Number: US-BRISTOL-MYERS SQUIBB COMPANY-12422754

PATIENT
  Age: 76 Year
  Sex: Female
  Weight: 77 kg

DRUGS (5)
  1. GLUCOPHAGE XR [Suspect]
     Indication: DIABETES MELLITUS NON-INSULIN-DEPENDENT
     Dosage: 750MG IN THE AM, 500MG IN THE PM
     Route: 048
  2. WARFARIN [Concomitant]
  3. NORVASC [Concomitant]
  4. BISOPROLOL FUMARATE + HCTZ [Concomitant]
  5. ZOCOR [Concomitant]

REACTIONS (1)
  - BLOOD GLUCOSE INCREASED [None]
